FAERS Safety Report 4780465-6 (Version None)
Quarter: 2005Q3

REPORT INFORMATION
  Report Type: 
  Country: None (occurrence: None)
  Receive Date: 20050927
  Receipt Date: 20050519
  Transmission Date: 20060218
  Serious: Yes (Hospitalization)
  Sender: FDA-Public Use
  Company Number: JP-NOVOPROD-244297

PATIENT
  Age: 81 Year
  Sex: Male
  Weight: 110 kg

DRUGS (5)
  1. NOVONORM [Suspect]
     Indication: INSULIN-REQUIRING TYPE II DIABETES MELLITUS
     Dosage: 3 TAB, QD
     Dates: start: 20050325, end: 20050401
  2. ZYLORIC ^FAES^ [Concomitant]
     Dosage: 100 MG, UNK
     Route: 048
  3. BACTRIM [Concomitant]
     Indication: URINARY TRACT INFECTION
     Dosage: 400 MG, UNK
     Route: 048
     Dates: start: 20050201, end: 20050401
  4. DILTIAZEM HYDROCHLORIDE [Concomitant]
     Dosage: 200 MG, UNK
     Route: 048
  5. AMAREL [Concomitant]
     Indication: INSULIN-REQUIRING TYPE II DIABETES MELLITUS
     Dosage: UNK, QD

REACTIONS (3)
  - DIARRHOEA [None]
  - PYREXIA [None]
  - TOXIC SKIN ERUPTION [None]
